FAERS Safety Report 4475535-6 (Version None)
Quarter: 2004Q4

REPORT INFORMATION
  Report Type: 
  Country: None (occurrence: None)
  Receive Date: 20041015
  Receipt Date: 20041006
  Transmission Date: 20050328
  Serious: Yes (Life-Threatening, Hospitalization, Disabling)
  Sender: FDA-Public Use
  Company Number: US-MERCK-0410USA00962

PATIENT
  Age: 35 Year
  Sex: Male

DRUGS (11)
  1. [THERAPY UNSPECIFIED] [Concomitant]
     Route: 065
  2. VICODIN [Concomitant]
     Route: 065
  3. CALCIUM (UNSPECIFIED) [Concomitant]
     Route: 065
  4. LIBRIUM [Concomitant]
     Route: 065
  5. ADVAIR DISKUS 100/50 [Concomitant]
     Route: 065
  6. PHENYTOIN [Concomitant]
     Route: 065
  7. DILANTIN [Concomitant]
     Route: 065
  8. VIOXX [Suspect]
     Indication: PAIN
     Route: 048
     Dates: start: 20040801, end: 20040930
  9. VIOXX [Suspect]
     Indication: SPINAL FRACTURE
     Route: 048
     Dates: start: 20040801, end: 20040930
  10. EFFEXOR [Concomitant]
     Route: 065
  11. AMBIEN [Concomitant]
     Route: 065

REACTIONS (2)
  - CHEST PAIN [None]
  - TINNITUS [None]
